FAERS Safety Report 8350926-1 (Version None)
Quarter: 2012Q2

REPORT INFORMATION
  Report Type: 
  Country: None (occurrence: None)
  Receive Date: 20120510
  Receipt Date: 20120507
  Transmission Date: 20120825
  Serious: Yes (Death, Hospitalization)
  Sender: FDA-Public Use
  Company Number: US-BAYER-2011-081237

PATIENT
  Sex: Male
  Weight: 71.8 kg

DRUGS (4)
  1. SARGRAMOSTIM [Suspect]
     Indication: MALIGNANT MELANOMA
     Dosage: 250 MCG/D DAYS 1-14
     Route: 058
     Dates: start: 20110715, end: 20110817
  2. MDX-010 [Suspect]
     Indication: MALIGNANT MELANOMA
     Dosage: 807 MG, UNK
     Route: 042
     Dates: start: 20110715, end: 20110804
  3. MDX-010 [Suspect]
     Dosage: 758 MG, UNK
     Dates: start: 20110901, end: 20110901
  4. SARGRAMOSTIM [Suspect]
     Dosage: 250 MCG/D DAYS 1-14
     Dates: start: 20110901, end: 20110914

REACTIONS (4)
  - FATIGUE [None]
  - EMBOLISM [None]
  - HYPOTENSION [None]
  - DEATH [None]
